FAERS Safety Report 23817501 (Version 4)
Quarter: 2024Q2

REPORT INFORMATION
  Report Type: Spontaneous
  Country: US (occurrence: US)
  Receive Date: 20240505
  Receipt Date: 20240607
  Transmission Date: 20240716
  Serious: No
  Sender: FDA-Public Use
  Company Number: US-SANOFI-02028900

PATIENT
  Age: 69 Year
  Sex: Female

DRUGS (1)
  1. LANTUS SOLOSTAR [Suspect]
     Active Substance: INSULIN GLARGINE
     Indication: Diabetes mellitus
     Dosage: 2 OR 3 IU QD
     Route: 058
     Dates: start: 2022

REACTIONS (2)
  - Blood glucose increased [Unknown]
  - Needle issue [Unknown]

NARRATIVE: CASE EVENT DATE: 20240401
